FAERS Safety Report 10286570 (Version 1)
Quarter: 2014Q3

REPORT INFORMATION
  Report Type: Report from Study
  Country: US (occurrence: US)
  Receive Date: 20140709
  Receipt Date: 20140709
  Transmission Date: 20150326
  Serious: Yes (Other)
  Sender: FDA-Public Use
  Company Number: PHEH2014US013461

PATIENT
  Age: 62 Year
  Sex: Female
  Weight: 82.99 kg

DRUGS (1)
  1. AFINITOR [Suspect]
     Active Substance: EVEROLIMUS
     Indication: BREAST CANCER
     Route: 048
     Dates: start: 20140319, end: 20140626

REACTIONS (1)
  - Hepatic lesion [Unknown]

NARRATIVE: CASE EVENT DATE: 20140626
